FAERS Safety Report 5199471-5 (Version None)
Quarter: 2006Q4

REPORT INFORMATION
  Report Type: 
  Country: None (occurrence: None)
  Receive Date: 20061229
  Receipt Date: 20061215
  Transmission Date: 20070319
  Serious: Yes (Hospitalization)
  Sender: FDA-Public Use
  Company Number: DSA_29170_2006

PATIENT
  Age: 88 Year
  Sex: Female
  Weight: 64.4108 kg

DRUGS (5)
  1. VASOTEC [Suspect]
     Dosage: DF PO
     Route: 048
  2. MAXZIDE [Concomitant]
  3. REGLAN /00041901/ [Concomitant]
  4. ATENOLOL [Concomitant]
  5. MECLIZINE [Concomitant]

REACTIONS (8)
  - CARDIOMEGALY [None]
  - COMPUTERISED TOMOGRAM ABNORMAL [None]
  - COUGH [None]
  - DYSPHAGIA [None]
  - GASTROOESOPHAGEAL REFLUX DISEASE [None]
  - HYPERTENSION [None]
  - INSOMNIA [None]
  - MENIERE'S DISEASE [None]
